FAERS Safety Report 9528560 (Version 1)
Quarter: 2013Q1

REPORT INFORMATION
  Report Type: Spontaneous
  Country: US (occurrence: None)
  Receive Date: 20130327
  Receipt Date: 20130327
  Transmission Date: 20140127
  Serious: Yes (Hospitalization)
  Sender: FDA-Public Use
  Company Number: 2011-4287

PATIENT
  Age: 72 Year
  Sex: Female
  Weight: 124 kg

DRUGS (25)
  1. SOMATULINE DEPOT [Suspect]
     Indication: ACROMEGALY
     Dosage: 60 MG (60 MG, 1 IN 28 D), INTRAMUSCULAR?
     Route: 030
     Dates: start: 20110711
  2. CALCIUM CARBONATE (CALCIUM CARBONATE) [Concomitant]
  3. LOVENOX (HEPARIN FRACTION, SODIUM SALT) [Concomitant]
  4. VICODIN (VICODIN) [Concomitant]
  5. POTASSIUM CHLORIDE (POTASSIUM CHLORIDE) [Concomitant]
  6. LOSARTAN (LOSARTAN) [Concomitant]
  7. WARFARIN (WARFARIN) [Concomitant]
  8. GLIPIZIDE (GLIPIZIDE) [Concomitant]
  9. CARVEDILOL (CARVEDILOL) [Concomitant]
  10. VITAMIN D (ERGOCALCIFEROL) [Concomitant]
  11. DOCUSATE (DOCUSATE) [Concomitant]
  12. LASIX (FUROSEMIDE) [Concomitant]
  13. MIRALAX [Concomitant]
  14. TYLENOL (PARACETAMOL) [Concomitant]
  15. ASPIRIN (ACETYLSALICYLIC ACID) [Concomitant]
  16. LEVOTHYROXINE (LEVOTHYROXINE) [Concomitant]
  17. METRONIDAZOLE (METRONIDAZOLE) [Concomitant]
  18. NYSTATIN TOPICAL POWDER (NYSTATIN) [Concomitant]
  19. EUCERIN (EUCERIN) [Concomitant]
  20. LANTISEPTIC (ALL OTHER THERAPEUTIC PRODUCTS) [Concomitant]
  21. CALCITROL (CALCITROL) [Concomitant]
  22. CITALOPRAM (CITALOPRAM) [Concomitant]
  23. FERROUS SULPHATE (FERROUS SULFATE) [Concomitant]
  24. GABAPENTIN (GABAPENTIN) [Concomitant]
  25. PAYLLIUM (PLANTAGO AFRA) [Concomitant]

REACTIONS (6)
  - Hypotension [None]
  - Urinary tract infection [None]
  - Haemorrhoids [None]
  - Clostridium difficile colitis [None]
  - Asthenia [None]
  - Incorrect route of drug administration [None]
